FAERS Safety Report 6632676-2 (Version None)
Quarter: 2010Q1

REPORT INFORMATION
  Report Type: 
  Country: None (occurrence: None)
  Receive Date: 20100312
  Receipt Date: 20100302
  Transmission Date: 20100710
  Serious: Yes (Hospitalization)
  Sender: FDA-Public Use
  Company Number: KR-ELI_LILLY_AND_COMPANY-KR201001002257

PATIENT
  Age: 54 Year
  Sex: Female

DRUGS (5)
  1. HUMALOG [Suspect]
     Indication: DIABETES MELLITUS
     Dosage: 12-13 UNITS
     Route: 058
     Dates: start: 20030101
  2. HUMALOG [Suspect]
     Dosage: 12-13 UNITS
     Route: 065
     Dates: start: 20091201, end: 20100111
  3. HUMULIN 70/30 [Suspect]
     Indication: DIABETES MELLITUS
     Dosage: UNK, UNKNOWN
     Route: 065
  4. IRON [Concomitant]
     Indication: MINERAL SUPPLEMENTATION
     Dosage: UNK, UNKNOWN
     Route: 065
  5. ANTIHYPERTENSIVES [Concomitant]
     Dosage: UNK, UNKNOWN
     Route: 065

REACTIONS (5)
  - BLOOD GLUCOSE FLUCTUATION [None]
  - FEELING ABNORMAL [None]
  - HYPERTENSION [None]
  - NEURITIS [None]
  - UTERINE LEIOMYOMA [None]
